FAERS Safety Report 5603965-5 (Version None)
Quarter: 2008Q1

REPORT INFORMATION
  Report Type: 
  Country: None (occurrence: None)
  Receive Date: 20080124
  Receipt Date: 20080124
  Transmission Date: 20080703
  Serious: Yes (Other)
  Sender: FDA-Public Use
  Company Number: None

PATIENT
  Sex: Female
  Weight: 45.5865 kg

DRUGS (2)
  1. OGEN [Suspect]
     Dosage: 25MG 1 PO QD
     Route: 048
  2. MAXZIDE [Suspect]
     Dosage: 25MG 1 PO BID
     Route: 048

REACTIONS (3)
  - GASTRIC DISORDER [None]
  - PYREXIA [None]
  - RASH [None]
